FAERS Safety Report 8289349-2 (Version None)
Quarter: 2012Q2

REPORT INFORMATION
  Report Type: 
  Country: None (occurrence: None)
  Receive Date: 20120417
  Receipt Date: 20120412
  Transmission Date: 20120825
  Serious: Yes (Hospitalization, Other)
  Sender: FDA-Public Use
  Company Number: PHHY2012AU007142

PATIENT
  Age: 47 Year
  Sex: Male

DRUGS (5)
  1. BACLOFEN [Suspect]
     Indication: ALCOHOLISM
     Dosage: 30 MG, DAILY
  2. VENLAFAXINE [Suspect]
  3. BUPRENORPHINE [Suspect]
  4. DIAZEPAM [Suspect]
  5. BACLOFEN [Suspect]
     Dosage: 80 MG, UNK

REACTIONS (6)
  - OVERDOSE [None]
  - DIZZINESS [None]
  - HYPERHIDROSIS [None]
  - DISORIENTATION [None]
  - ATAXIA [None]
  - CIRCULATORY COLLAPSE [None]
